FAERS Safety Report 8890955 (Version 5)
Quarter: 2013Q1

REPORT INFORMATION
  Report Type: Report from Study
  Country: CA (occurrence: CA)
  Receive Date: 20121107
  Receipt Date: 20130109
  Transmission Date: 20140127
  Serious: Yes (Death, Other)
  Sender: FDA-Public Use
  Company Number: CA-ROCHE-1153158

PATIENT
  Age: 67 None
  Sex: Male
  Weight: 102.1 kg

DRUGS (1)
  1. BEVACIZUMAB [Suspect]
     Indication: GLIOBLASTOMA
     Dosage: THERAPY START DATE: 14/FEB/2012
     Route: 042
     Dates: end: 20121129

REACTIONS (8)
  - Death [Fatal]
  - Neoplasm [Not Recovered/Not Resolved]
  - Hypertension [Not Recovered/Not Resolved]
  - Mobility decreased [Not Recovered/Not Resolved]
  - Platelet count decreased [Not Recovered/Not Resolved]
  - Blood pressure increased [Unknown]
  - Fall [Unknown]
  - Hypertension [Unknown]
